FAERS Safety Report 6702671-3 (Version None)
Quarter: 2010Q2

REPORT INFORMATION
  Report Type: 
  Country: None (occurrence: None)
  Receive Date: 20100429
  Receipt Date: 20100429
  Transmission Date: 20101027
  Serious: Yes (Hospitalization)
  Sender: FDA-Public Use
  Company Number: US-KINGPHARMUSA00001-K200900659

PATIENT
  Sex: Female
  Weight: 68.481 kg

DRUGS (14)
  1. AVINZA [Suspect]
     Indication: PAIN
     Dosage: 90 MG, QD
     Route: 048
     Dates: start: 20061001, end: 20061217
  2. MORPHINE [Suspect]
     Indication: PAIN
     Dosage: 120 MG, BID
     Route: 048
     Dates: start: 20061201
  3. MORPHINE [Suspect]
     Dosage: UNK, PRN
     Route: 048
     Dates: start: 20061201
  4. SUNITINIB MALATE [Suspect]
     Indication: NON-SMALL CELL LUNG CANCER
     Dosage: 50 MG, QD
     Route: 048
     Dates: start: 20061129, end: 20061217
  5. SUNITINIB MALATE [Suspect]
     Dosage: 50 MG, QD
     Route: 048
     Dates: start: 20070118, end: 20070202
  6. SUNITINIB MALATE [Suspect]
     Dosage: UNK
  7. LEXAPRO [Concomitant]
     Dosage: UNK
     Dates: start: 20061001
  8. THEOPHYLLINE [Concomitant]
     Dosage: UNK
     Dates: start: 19960101
  9. XANAX [Concomitant]
     Dosage: UNK
     Dates: start: 20050101
  10. SYNTHROID [Concomitant]
     Dosage: UNK
     Dates: start: 20040101
  11. NORCO [Concomitant]
     Dosage: UNK
     Dates: start: 20060101
  12. MONTELUKAST SODIUM [Concomitant]
     Dosage: UNK
     Dates: start: 20060101
  13. ADVAIR DISKUS 100/50 [Concomitant]
     Dosage: UNK
     Dates: start: 20020101
  14. OXYGEN [Concomitant]
     Dosage: UNK
     Dates: start: 20020101

REACTIONS (10)
  - BLOOD POTASSIUM DECREASED [None]
  - CHEST PAIN [None]
  - CONFUSIONAL STATE [None]
  - HALLUCINATION [None]
  - LUNG INFILTRATION [None]
  - MENTAL STATUS CHANGES [None]
  - NARCOTIC INTOXICATION [None]
  - NEUTROPENIA [None]
  - PNEUMONIA [None]
  - THROMBOCYTOPENIA [None]
